FAERS Safety Report 9995343 (Version 1)
Quarter: 2014Q1

REPORT INFORMATION
  Report Type: Spontaneous
  Country: US (occurrence: None)
  Receive Date: 20140214
  Receipt Date: 20140214
  Transmission Date: 20141002
  Serious: No
  Sender: FDA-Public Use
  Company Number: US-013520

PATIENT
  Age: 56 Year
  Sex: Female
  Weight: 74.84 kg

DRUGS (11)
  1. PICO-SALAX (NOT SPECIFIED) [Suspect]
     Indication: BOWEL PREPARATION
     Dosage: FIRST PACKET TAKEN @ 5PM ON 03NOV2013, PATIENT IS TO TAKE THE SECOND PACKET AT 4PM ON 04NOV2013
  2. NORCO [Concomitant]
  3. XANAX [Concomitant]
  4. FENTANYL [Concomitant]
  5. LEVOTHYROXINE [Concomitant]
  6. GEMFIBROZIL [Concomitant]
  7. CYMBALTA [Concomitant]
  8. PRAVASTATIN [Concomitant]
  9. REMERON [Concomitant]
  10. CARVEDILOL [Concomitant]
  11. POTASSIUM CHLORIDE [Concomitant]

REACTIONS (3)
  - Abdominal distension [None]
  - Gastrointestinal sounds abnormal [None]
  - Treatment noncompliance [None]
